FAERS Safety Report 25343305 (Version 1)
Quarter: 2025Q2

REPORT INFORMATION
  Report Type: Spontaneous
  Country: US (occurrence: US)
  Receive Date: 20250521
  Receipt Date: 20250521
  Transmission Date: 20250716
  Serious: Yes (Death, Hospitalization, Other)
  Sender: BRISTOL-MYERS SQUIBB COMPANY
  Company Number: US-BRISTOL-MYERS SQUIBB COMPANY-2025-070810

PATIENT
  Age: 72 Year
  Sex: Male

DRUGS (1)
  1. POMALYST [Suspect]
     Active Substance: POMALIDOMIDE
     Indication: Plasma cell myeloma
     Dosage: QD
     Route: 048
     Dates: start: 20190503, end: 20250314

REACTIONS (9)
  - Confusional state [Unknown]
  - Asthenia [Unknown]
  - Diarrhoea [Unknown]
  - Acute kidney injury [Unknown]
  - Encephalopathy [Unknown]
  - Tooth infection [Unknown]
  - Hypoglycaemia [Unknown]
  - Cardiac arrest [Fatal]
  - Lethargy [Unknown]

NARRATIVE: CASE EVENT DATE: 20250308
